FAERS Safety Report 18603251 (Version 2)
Quarter: 2022Q4

REPORT INFORMATION
  Report Type: Spontaneous
  Country: US (occurrence: US)
  Receive Date: 20201210
  Receipt Date: 20221008
  Transmission Date: 20230113
  Serious: Yes (Other)
  Sender: FDA-Public Use
  Company Number: US-PURDUE-USA-2020-0156936

PATIENT
  Sex: Female

DRUGS (2)
  1. DILAUDID [Suspect]
     Active Substance: HYDROMORPHONE HYDROCHLORIDE
     Indication: Product used for unknown indication
     Route: 048
  2. ACETAMINOPHEN\OXYCODONE HYDROCHLORIDE [Suspect]
     Active Substance: ACETAMINOPHEN\OXYCODONE HYDROCHLORIDE
     Indication: Product used for unknown indication
     Route: 048

REACTIONS (16)
  - Drug dependence [Unknown]
  - Sneezing [Unknown]
  - Dysarthria [Unknown]
  - Memory impairment [Unknown]
  - Bowel movement irregularity [Unknown]
  - Arthralgia [Unknown]
  - Hypokinesia [Unknown]
  - Myalgia [Unknown]
  - Increased appetite [Unknown]
  - Weight increased [Unknown]
  - Abdominal distension [Unknown]
  - Respiratory rate increased [Unknown]
  - Fatigue [Unknown]
  - Mood swings [Unknown]
  - Vision blurred [Unknown]
  - Developmental delay [Unknown]
